FAERS Safety Report 17173357 (Version 1)
Quarter: 2019Q4

REPORT INFORMATION
  Report Type: Report from Study
  Country: AU (occurrence: AU)
  Receive Date: 20191219
  Receipt Date: 20191219
  Transmission Date: 20200122
  Serious: No
  Sender: FDA-Public Use
  Company Number: AU-BEH-2019110507

PATIENT
  Age: 54 Year
  Sex: Female
  Weight: 60 kg

DRUGS (5)
  1. PANADOL CODEINE [Concomitant]
     Dosage: 500MG/10MG, EVERY DAY
     Route: 048
  2. HIZENTRA [Suspect]
     Active Substance: HUMAN IMMUNOGLOBULIN G
     Indication: PRIMARY IMMUNODEFICIENCY SYNDROME
     Dosage: 8 GRAM (40ML), QW
     Route: 058
     Dates: start: 20191209
  3. ROSUVASTATIN. [Concomitant]
     Active Substance: ROSUVASTATIN
     Dosage: UNK, QD
  4. EZETIMIBE. [Concomitant]
     Active Substance: EZETIMIBE
     Dosage: UNK, QD
  5. ALENDRONATE PLUS D3 [Concomitant]
     Dosage: 70MG/140MCG

REACTIONS (2)
  - Administration site erythema [Unknown]
  - Administration site swelling [Unknown]

NARRATIVE: CASE EVENT DATE: 20191209
